FAERS Safety Report 12830022 (Version 1)
Quarter: 2016Q4

REPORT INFORMATION
  Report Type: Spontaneous
  Country: US (occurrence: US)
  Receive Date: 20161007
  Receipt Date: 20161007
  Transmission Date: 20170207
  Serious: No
  Sender: FDA-Public Use
  Company Number: US-SA-2016SA141627

PATIENT
  Age: 56 Year
  Sex: Female

DRUGS (2)
  1. AUBAGIO [Suspect]
     Active Substance: TERIFLUNOMIDE
     Route: 065
     Dates: start: 201607
  2. TECFIDERA [Suspect]
     Active Substance: DIMETHYL FUMARATE
     Route: 065

REACTIONS (9)
  - Nausea [Unknown]
  - Abdominal discomfort [Unknown]
  - Pain in extremity [Unknown]
  - Choking sensation [Unknown]
  - Unevaluable event [Unknown]
  - Limb discomfort [Unknown]
  - Headache [Unknown]
  - Rash [Unknown]
  - Increased upper airway secretion [Unknown]
